FAERS Safety Report 6644971-1 (Version None)
Quarter: 2010Q1

REPORT INFORMATION
  Report Type: 
  Country: None (occurrence: None)
  Receive Date: 20100322
  Receipt Date: 20100310
  Transmission Date: 20100710
  Serious: Yes (Hospitalization)
  Sender: FDA-Public Use
  Company Number: PHEH2010US00581

PATIENT
  Sex: Female
  Weight: 60.317 kg

DRUGS (9)
  1. RECLAST [Suspect]
     Indication: OSTEOPENIA
     Dosage: 5 MG/ 100ML INFUSION OVER MINIMUM 15 MINUTES
     Route: 042
     Dates: start: 20091230, end: 20091230
  2. CALCIUM [Concomitant]
     Dosage: 600 MG, BID
  3. VITAMIN D3 [Concomitant]
     Dosage: UNK
  4. MULTI-VITAMINS [Concomitant]
     Dosage: UNK
  5. VITAMIN C [Concomitant]
  6. CO-QID [Concomitant]
  7. VITAMIN D [Concomitant]
     Dosage: UNK
  8. VALTREX [Concomitant]
  9. YOHIMBE [Concomitant]

REACTIONS (5)
  - ABASIA [None]
  - DYSPNOEA [None]
  - INFLUENZA LIKE ILLNESS [None]
  - PAIN [None]
  - TREMOR [None]
